FAERS Safety Report 23280017 (Version 1)
Quarter: 2023Q4

REPORT INFORMATION
  Report Type: Spontaneous
  Country: US (occurrence: US)
  Receive Date: 20231210
  Receipt Date: 20231210
  Transmission Date: 20240110
  Serious: Yes (Death, Other)
  Sender: FDA-Public Use
  Company Number: US-ENDO-CASE-0049318

PATIENT
  Sex: Male

DRUGS (1)
  1. ACETAMINOPHEN\OXYCODONE HYDROCHLORIDE [Suspect]
     Active Substance: ACETAMINOPHEN\OXYCODONE HYDROCHLORIDE

REACTIONS (7)
  - Death [Fatal]
  - Dependence [Unknown]
  - Renal cancer [Unknown]
  - Mood swings [Unknown]
  - Suicidal ideation [Unknown]
  - Cardiac failure [Unknown]
  - Gastrointestinal motility disorder [Unknown]
